FAERS Safety Report 4341084-9 (Version None)
Quarter: 2004Q2

REPORT INFORMATION
  Report Type: 
  Country: None (occurrence: None)
  Receive Date: 20040419
  Receipt Date: 20040406
  Transmission Date: 20050107
  Serious: Yes (Hospitalization)
  Sender: FDA-Public Use
  Company Number: US-ROCHE-364013

PATIENT
  Age: 66 Year
  Sex: Male
  Weight: 63.5 kg

DRUGS (7)
  1. CAPECITABINE [Suspect]
     Route: 048
     Dates: start: 20040308, end: 20040331
  2. OXYCONTIN [Concomitant]
  3. MARINOL [Concomitant]
  4. REGLAN [Concomitant]
  5. COMPAZINE [Concomitant]
  6. PANCREASE [Concomitant]
  7. PROTONIX [Concomitant]

REACTIONS (10)
  - ABDOMINAL PAIN [None]
  - ASTHENIA [None]
  - CACHEXIA [None]
  - DEHYDRATION [None]
  - HYPERGLYCAEMIA [None]
  - HYPERNATRAEMIA [None]
  - HYPOTENSION [None]
  - NAUSEA [None]
  - TACHYCARDIA [None]
  - WEIGHT DECREASED [None]
